FAERS Safety Report 5873118-4 (Version None)
Quarter: 2008Q3

REPORT INFORMATION
  Report Type: 
  Country: None (occurrence: None)
  Receive Date: 20080908
  Receipt Date: 20080829
  Transmission Date: 20090109
  Serious: Yes (Hospitalization)
  Sender: FDA-Public Use
  Company Number: JP-BRISTOL-MYERS SQUIBB COMPANY-14321848

PATIENT
  Age: 60 Year
  Sex: Female

DRUGS (8)
  1. ABATACEPT [Suspect]
     Indication: RHEUMATOID ARTHRITIS
     Route: 041
  2. ACTEMRA [Concomitant]
     Dosage: FORM: INJ
     Route: 041
     Dates: start: 20080716
  3. METOLATE [Concomitant]
     Dosage: FORM: TAB
     Route: 048
  4. PREDONINE [Concomitant]
     Dosage: FORM: TAB
     Route: 048
  5. PREDNISOLONE [Concomitant]
     Dosage: FORM: TAB
     Route: 048
  6. PENTOIL [Concomitant]
     Dosage: FORM: TAB
     Route: 048
  7. VOLTAREN [Concomitant]
     Dosage: FORM: TAB
     Route: 048
  8. ALENDRONATE SODIUM [Concomitant]
     Dosage: FORM: TAB
     Route: 048

REACTIONS (2)
  - DYSAESTHESIA [None]
  - HYPOAESTHESIA [None]
